FAERS Safety Report 6551717-4 (Version None)
Quarter: 2010Q1

REPORT INFORMATION
  Report Type: 
  Country: None (occurrence: None)
  Receive Date: 20100126
  Receipt Date: 20100119
  Transmission Date: 20100710
  Serious: Yes (Hospitalization, Other)
  Sender: FDA-Public Use
  Company Number: TR-ELI_LILLY_AND_COMPANY-TR201001003776

PATIENT
  Age: 65 Year
  Sex: Male

DRUGS (8)
  1. HUMALOG [Suspect]
     Indication: DIABETES MELLITUS
     Dosage: 10 IU, EACH MORNING
     Route: 058
     Dates: start: 20060101
  2. HUMALOG [Suspect]
     Dosage: 14 IU, OTHER
     Route: 058
     Dates: start: 20060101
  3. HUMALOG [Suspect]
     Dosage: 14 IU, EACH EVENING
     Route: 058
     Dates: start: 20060101
  4. LEVEMIR [Concomitant]
     Indication: DIABETES MELLITUS
     Dosage: 25 IU, DAILY (1/D)
     Route: 058
  5. GLUKOFEN [Concomitant]
     Indication: DIABETES MELLITUS
     Dosage: UNK UNK, 2/D
     Route: 048
  6. PRAVACHOL [Concomitant]
     Indication: BLOOD CHOLESTEROL ABNORMAL
     Dosage: UNK UNK, 2/D
     Route: 048
  7. CORASPIN [Concomitant]
     Dosage: UNK UNK, DAILY (1/D)
     Route: 048
  8. VASTAREL [Concomitant]
     Dosage: UNK UNK, 2/D
     Route: 048

REACTIONS (2)
  - CEREBRAL ARTERY EMBOLISM [None]
  - CEREBRAL ARTERY THROMBOSIS [None]
